FAERS Safety Report 21672716 (Version 1)
Quarter: 2022Q4

REPORT INFORMATION
  Report Type: Spontaneous
  Country: US (occurrence: None)
  Receive Date: 20221202
  Receipt Date: 20221202
  Transmission Date: 20230112
  Serious: No
  Sender: FDA-Public Use
  Company Number: US-Hikma Pharmaceuticals USA Inc.-US-H14001-22-00241

PATIENT
  Age: 65 Year
  Sex: Female

DRUGS (1)
  1. FUROSEMIDE [Suspect]
     Active Substance: FUROSEMIDE
     Indication: Product used for unknown indication
     Dosage: HALF OF THE 20 MG TABLET
     Route: 048
     Dates: end: 20220116

REACTIONS (6)
  - Oral discomfort [Recovering/Resolving]
  - Tongue discomfort [Recovering/Resolving]
  - Paraesthesia [Recovering/Resolving]
  - Arthralgia [Unknown]
  - Burning sensation [Recovering/Resolving]
  - Drug hypersensitivity [Unknown]
